FAERS Safety Report 26185984 (Version 1)
Quarter: 2025Q4

REPORT INFORMATION
  Report Type: Spontaneous
  Country: US (occurrence: US)
  Receive Date: 20251222
  Receipt Date: 20251222
  Transmission Date: 20260117
  Serious: Yes (Other)
  Sender: MYLAN
  Company Number: US-MYLANLABS-2025M1107646

PATIENT
  Age: 35 Year

DRUGS (3)
  1. CIDOFOVIR [Suspect]
     Active Substance: CIDOFOVIR
     Indication: Monkeypox
     Dosage: UNK, 8 DOSES
  2. TECOVIRIMAT [Concomitant]
     Active Substance: TECOVIRIMAT
     Indication: Monkeypox
     Dosage: UNK
  3. VACCINIA IMMUNE GLOBULIN HUMAN [Concomitant]
     Active Substance: VACCINIA IMMUNE GLOBULIN HUMAN
     Indication: Monkeypox
     Dosage: UNK

REACTIONS (3)
  - Toxicity to various agents [Unknown]
  - Acute kidney injury [Unknown]
  - Product prescribing issue [Unknown]
